FAERS Safety Report 12136860 (Version 1)
Quarter: 2016Q1

REPORT INFORMATION
  Report Type: Spontaneous
  Country: US (occurrence: US)
  Receive Date: 20160302
  Receipt Date: 20160302
  Transmission Date: 20160526
  Serious: Yes (Other)
  Sender: FDA-Public Use
  Company Number: US-DRREDDYS-USA/USA/16/0077367

PATIENT
  Sex: Male
  Weight: 71.21 kg

DRUGS (3)
  1. ZENATANE [Suspect]
     Active Substance: ISOTRETINOIN
     Indication: ACNE
     Route: 048
     Dates: start: 20151216
  2. ZENATANE [Suspect]
     Active Substance: ISOTRETINOIN
     Route: 048
     Dates: start: 20160115, end: 20160218
  3. AMOXICILLIN. [Suspect]
     Active Substance: AMOXICILLIN
     Indication: ACNE
     Route: 048
     Dates: start: 201510, end: 201511

REACTIONS (3)
  - Mood altered [Unknown]
  - Diarrhoea [Recovered/Resolved]
  - Depression [Unknown]
